FAERS Safety Report 21869549 (Version 2)
Quarter: 2023Q1

REPORT INFORMATION
  Report Type: Report from Study
  Country: US (occurrence: US)
  Receive Date: 20230117
  Receipt Date: 20230210
  Transmission Date: 20230417
  Serious: Yes (Other)
  Sender: FDA-Public Use
  Company Number: US-ABBVIE-4270806

PATIENT
  Age: 63 Year
  Sex: Female

DRUGS (2)
  1. HUMIRA [Suspect]
     Active Substance: ADALIMUMAB
     Indication: Rheumatoid arthritis
     Dosage: CF
     Route: 058
     Dates: start: 20220505, end: 202212
  2. HUMIRA [Suspect]
     Active Substance: ADALIMUMAB
     Dosage: CF
     Route: 058
     Dates: start: 20230105, end: 20230105

REACTIONS (6)
  - Hepatic cirrhosis [Unknown]
  - Anaemia [Unknown]
  - Fatigue [Unknown]
  - Weight decreased [Unknown]
  - Gastrectomy [Recovering/Resolving]
  - Post procedural sepsis [Unknown]

NARRATIVE: CASE EVENT DATE: 20221223
